FAERS Safety Report 9063573 (Version 2)
Quarter: 2013Q1

REPORT INFORMATION
  Report Type: Spontaneous
  Country: JP (occurrence: JP)
  Receive Date: 20130213
  Receipt Date: 20130301
  Transmission Date: 20140127
  Serious: Yes (Hospitalization)
  Sender: FDA-Public Use
  Company Number: JP-PFIZER INC-2013056928

PATIENT
  Sex: Male

DRUGS (1)
  1. CHAMPIX [Suspect]
     Indication: SPUTUM RETENTION
     Dosage: UNK
     Route: 048
     Dates: start: 201301, end: 201302

REACTIONS (2)
  - Prostate cancer [Unknown]
  - Off label use [Recovered/Resolved]
